FAERS Safety Report 14765312 (Version 1)
Quarter: 2018Q2

REPORT INFORMATION
  Report Type: Spontaneous
  Country: AU (occurrence: AU)
  Receive Date: 20180416
  Receipt Date: 20180416
  Transmission Date: 20180711
  Serious: Yes (Other)
  Sender: FDA-Public Use
  Company Number: AU-ASTRAZENECA-2018SE14695

PATIENT
  Sex: Female

DRUGS (1)
  1. FASLODEX [Suspect]
     Active Substance: FULVESTRANT
     Indication: BREAST CANCER
     Route: 030

REACTIONS (8)
  - Injection site mass [Unknown]
  - Malignant neoplasm progression [Unknown]
  - Myocardial infarction [Unknown]
  - Pain in extremity [Unknown]
  - Dry skin [Unknown]
  - Cerebrovascular accident [Unknown]
  - Alopecia [Unknown]
  - Back pain [Unknown]
